FAERS Safety Report 7301963-7 (Version None)
Quarter: 2011Q1

REPORT INFORMATION
  Report Type: 
  Country: None (occurrence: None)
  Receive Date: 20110218
  Receipt Date: 20110210
  Transmission Date: 20110831
  Serious: Yes (Other)
  Sender: FDA-Public Use
  Company Number: US-ROCHE-759924

PATIENT
  Age: 57 Year
  Sex: Male

DRUGS (7)
  1. XELODA [Suspect]
     Dosage: XELODA HELD FOR THREE WEEKS AND ER-STARTED
     Route: 048
  2. XELODA [Suspect]
     Indication: COLON CANCER
     Dosage: 2 WEEKS ON AND 1 WEEK OFF
     Route: 048
     Dates: start: 20100701
  3. XELODA [Suspect]
     Dosage: XELODA HELF FOR A MONTH AND RESTARTED
     Route: 048
     Dates: start: 20110101
  4. XELODA [Suspect]
     Dosage: 2 WEEKS ON AND 1 WEEK OFF
     Route: 048
  5. XELODA [Suspect]
     Dosage: 2 WEEKS ON AND 1 WEEK OFF
     Route: 048
  6. OXALIPLATIN [Suspect]
     Indication: COLON CANCER
     Route: 042
     Dates: start: 20100701
  7. XELODA [Suspect]
     Dosage: 2000 MG MORNING AND 1500 MG EVENING, 2 WEEKS ON AND 1 WEEK OFF
     Route: 048

REACTIONS (6)
  - SKIN FISSURES [None]
  - WEIGHT INCREASED [None]
  - ASCITES [None]
  - CONFUSIONAL STATE [None]
  - DISORIENTATION [None]
  - NEUROPATHY PERIPHERAL [None]
